FAERS Safety Report 6398328-1 (Version None)
Quarter: 2009Q4

REPORT INFORMATION
  Report Type: 
  Country: None (occurrence: None)
  Receive Date: 20091007
  Receipt Date: 20090921
  Transmission Date: 20100525
  Serious: Yes (Hospitalization)
  Sender: FDA-Public Use
  Company Number: DSA_41675_2009

PATIENT
  Age: 20 Year
  Sex: Female

DRUGS (3)
  1. CITALOPRAM HYDROBROMIDE [Suspect]
     Dosage: 2760 MG 1X, NOT THE PRESCRIBED AMOUNT)
  2. DIAZEPAM [Suspect]
     Dosage: 10 MG 1X
  3. ALCOHOL (ALCOHOL) [Suspect]
     Dosage: ORAL
     Route: 048

REACTIONS (8)
  - ABDOMINAL PAIN [None]
  - ALCOHOL USE [None]
  - GRAND MAL CONVULSION [None]
  - HYPOGLYCAEMIA [None]
  - NAUSEA [None]
  - OVERDOSE [None]
  - PYREXIA [None]
  - SINUS TACHYCARDIA [None]
